FAERS Safety Report 5315967-7 (Version None)
Quarter: 2007Q2

REPORT INFORMATION
  Report Type: 
  Country: None (occurrence: None)
  Receive Date: 20070503
  Receipt Date: 20070420
  Transmission Date: 20071010
  Serious: Yes (Life-Threatening)
  Sender: FDA-Public Use
  Company Number: JP-ROCHE-484776

PATIENT
  Age: 83 Year
  Sex: Male
  Weight: 45 kg

DRUGS (10)
  1. TAMIFLU [Suspect]
     Route: 048
     Dates: start: 20070205, end: 20070206
  2. TAMIFLU [Suspect]
     Route: 048
     Dates: start: 20070207, end: 20070207
  3. ARICEPT [Concomitant]
     Route: 048
     Dates: start: 20061025
  4. OLMETEC [Concomitant]
     Route: 048
     Dates: start: 20060607
  5. NORVASC [Concomitant]
     Route: 048
     Dates: start: 20060803
  6. DISOPYRAMIDE PHOSPHATE [Concomitant]
     Dosage: DRUG WAS REPORTED AS RISLAMID.
     Route: 048
     Dates: start: 20060912
  7. ASPIRIN [Concomitant]
     Route: 048
     Dates: start: 20060912
  8. WARFARIN [Concomitant]
     Route: 048
     Dates: start: 20060912
  9. LEVOFLOXACIN [Concomitant]
     Route: 048
     Dates: start: 20070205, end: 20070207
  10. LORFENAMIN [Concomitant]
     Route: 048
     Dates: start: 20070205, end: 20070207

REACTIONS (1)
  - ABNORMAL BEHAVIOUR [None]
